FAERS Safety Report 8177105-5 (Version None)
Quarter: 2012Q1

REPORT INFORMATION
  Report Type: 
  Country: None (occurrence: None)
  Receive Date: 20120301
  Receipt Date: 20120223
  Transmission Date: 20120608
  Serious: Yes (Hospitalization)
  Sender: FDA-Public Use
  Company Number: US-GLAXOSMITHKLINE-A0967171A

PATIENT
  Age: 51 Year
  Sex: Female

DRUGS (3)
  1. LAMICTAL [Suspect]
     Indication: BIPOLAR DISORDER
     Dosage: 150MG PER DAY
     Route: 048
     Dates: start: 20111208
  2. LEXAPRO [Concomitant]
  3. ANTIBIOTIC [Concomitant]

REACTIONS (6)
  - SYSTEMIC MYCOSIS [None]
  - STEVENS-JOHNSON SYNDROME [None]
  - PHARYNGEAL DISORDER [None]
  - CANDIDIASIS [None]
  - EAR DISORDER [None]
  - HYPOAESTHESIA [None]
